FAERS Safety Report 5809603-0 (Version None)
Quarter: 2008Q3

REPORT INFORMATION
  Report Type: 
  Country: None (occurrence: None)
  Receive Date: 20080715
  Receipt Date: 20080707
  Transmission Date: 20090109
  Serious: Yes (Life-Threatening, Hospitalization, Other)
  Sender: FDA-Public Use
  Company Number: FR-ROCHE-566414

PATIENT
  Sex: Female
  Weight: 52 kg

DRUGS (3)
  1. BONIVA [Suspect]
     Indication: OSTEOPOROSIS
     Route: 048
     Dates: start: 20080407, end: 20080505
  2. OROCAL D3 [Concomitant]
     Dosage: 1 DOSE PER DAY
     Route: 048
     Dates: start: 20070201, end: 20080101
  3. TANAKAN [Concomitant]
     Dosage: DOSAGE REGIMEN 3 DOSES PER DAY
     Route: 048
     Dates: start: 20060601

REACTIONS (12)
  - APATHY [None]
  - BLOOD IMMUNOGLOBULIN E INCREASED [None]
  - COMA [None]
  - CREUTZFELDT-JAKOB DISEASE [None]
  - DISORIENTATION [None]
  - EPILEPSY [None]
  - FATIGUE [None]
  - HYPERTENSION [None]
  - MALAISE [None]
  - MEMORY IMPAIRMENT [None]
  - TACHYCARDIA [None]
  - VERTIGO [None]
